FAERS Safety Report 9380570 (Version 3)
Quarter: 2013Q3

REPORT INFORMATION
  Report Type: Spontaneous
  Country: DE (occurrence: None)
  Receive Date: 20130628
  Receipt Date: 20130724
  Transmission Date: 20140515
  Serious: Yes (Other)
  Sender: FDA-Public Use
  Company Number: 1306-817

PATIENT
  Age: 73 Year
  Sex: Female

DRUGS (1)
  1. EYLEA (AFLIBERCEPT) (INJECTION) (AFLIBERCEPT) [Suspect]
     Indication: MACULAR DEGENERATION
     Dosage: INTRAOCULAR
     Route: 031
     Dates: start: 201302, end: 201304

REACTIONS (1)
  - Retinal haemorrhage [None]
